FAERS Safety Report 21706931 (Version 1)
Quarter: 2022Q4

REPORT INFORMATION
  Report Type: Spontaneous
  Country: CH (occurrence: CH)
  Receive Date: 20221209
  Receipt Date: 20221209
  Transmission Date: 20230112
  Serious: Yes (Hospitalization)
  Sender: FDA-Public Use
  Company Number: CH-SM-2022-17210

PATIENT
  Age: 62 Year
  Sex: Male

DRUGS (14)
  1. IBUPROFEN [Suspect]
     Active Substance: IBUPROFEN
     Indication: Product used for unknown indication
     Dosage: 1200 MILLIGRAM DAILY; IRFEN  (IBUPROFEN) 400 MG 1-1-1-0 SINCE UNKNOWN DATE UNTIL 06/01/2022 , UNIT D
     Route: 048
     Dates: end: 20220601
  2. AMOXICILLIN\CLAVULANIC ACID [Suspect]
     Active Substance: AMOXICILLIN\CLAVULANIC ACID
     Indication: Product used for unknown indication
     Dosage: AMOXICILLIN / CLAVULANIC ACID FROM 05/02/2022 TO 05/16/2022 AND ON 05/19/2022 , UNIT DOSE : 1 DF , D
     Route: 065
     Dates: start: 20220502, end: 20220516
  3. AMOXICILLIN\CLAVULANIC ACID [Suspect]
     Active Substance: AMOXICILLIN\CLAVULANIC ACID
     Dosage: AMOXICILLIN / CLAVULANIC ACID FROM 05/02/2022 TO 05/16/2022 AND ON 05/19/2022 , UNIT DOSE : 1 DF
     Route: 065
     Dates: start: 20220519, end: 20220519
  4. DAFALGAN [Suspect]
     Active Substance: ACETAMINOPHEN
     Indication: Product used for unknown indication
     Dosage: 1500 MILLIGRAM DAILY; DAFALGAN  (PARACETAMOL) 500 MG ORALLY 1-1-1-0 SINCE UNKNOWN DATE UNTIL 06/01/2
     Route: 048
     Dates: end: 20220601
  5. BACTRIM [Suspect]
     Active Substance: SULFAMETHOXAZOLE\TRIMETHOPRIM
     Indication: Product used for unknown indication
     Dosage: 3 DOSAGE FORMS DAILY; BACTRIM  FORTE (SULFAMETHOXAZOLE, TRIMETHOPRIM) 800 / 160 MG 1-1-1-0 FROM 05/0
     Route: 048
     Dates: start: 20220507, end: 20220601
  6. PANTOPRAZOLE SODIUM [Suspect]
     Active Substance: PANTOPRAZOLE SODIUM
     Indication: Product used for unknown indication
     Dosage: 40 MILLIGRAM DAILY; PANTOPRAZOLE SANDOZ  (PANTOPRAZOLE) 40 MG 1-0-0-0, TAKING IRFEN , STOPPED ON 07.
     Route: 048
     Dates: end: 20220607
  7. XARELTO [Suspect]
     Active Substance: RIVAROXABAN
     Indication: Product used for unknown indication
     Dosage: 10 MILLIGRAM DAILY; XARELTO  (RIVAROXABAN) 10 MG 0-0-1-0 SINCE UNKNOWN DATE UNTIL 06/01/2022  , THER
     Route: 048
     Dates: end: 20220601
  8. KEFZOL [Suspect]
     Active Substance: CEFAZOLIN SODIUM
     Indication: Product used for unknown indication
     Dosage: KEFZOL  (CEFAZOLIN) FROM 05/20/2022 TO 05/29/2022 AND FROM 06/02/2022 TO 06/03/2022 , UNIT DOSE :1 D
     Route: 065
     Dates: start: 20220520, end: 20220529
  9. KEFZOL [Suspect]
     Active Substance: CEFAZOLIN SODIUM
     Dosage: KEFZOL  (CEFAZOLIN) FROM 05/20/2022 TO 05/29/2022 AND FROM 06/02/2022 TO 06/03/2022; UNIT DOSE; 1DF;
     Route: 065
     Dates: start: 20220602, end: 20220603
  10. PIPERACILLIN SODIUM\TAZOBACTAM SODIUM [Suspect]
     Active Substance: PIPERACILLIN SODIUM\TAZOBACTAM SODIUM
     Indication: Product used for unknown indication
     Dosage: PIPERACILLIN / TAZOBACTAM ONCE ON 06/01/2022; TOTALLY  , UNIT DOSE : 1 DF , FREQUENCY TIME : 1 TOTAL
     Route: 065
     Dates: start: 20220601, end: 20220601
  11. METAMIZOLE [Concomitant]
     Active Substance: METAMIZOLE
     Indication: Product used for unknown indication
     Dosage: 4000 MILLIGRAM DAILY; NOVALGIN  (METAMIZOL) 500 MG 2-2-2-2 FROM 06/02/2022 UNTIL FURTHER NOTICE  , U
     Route: 048
     Dates: start: 20220602
  12. NALOXONE HYDROCHLORIDE\OXYCODONE HYDROCHLORIDE [Concomitant]
     Active Substance: NALOXONE HYDROCHLORIDE\OXYCODONE HYDROCHLORIDE
     Indication: Product used for unknown indication
     Dosage: OXYCODONE-NALOXONE SANDOZ  (OXYCODONE / NALOXONE) FROM 06/02/2022 TO 06/14/2022  , UNIT DOSE : 1 DF
     Route: 048
     Dates: start: 20220602, end: 20220614
  13. OXYCODONE HYDROCHLORIDE [Concomitant]
     Active Substance: OXYCODONE HYDROCHLORIDE
     Indication: Product used for unknown indication
     Dosage: OXYNORM  (OXYCODONE) 5 MG IN RESERVE FROM 06/02/2022 UNTIL FURTHER NOTICE; AS NECESSARY , UNIT DOSE
     Route: 048
     Dates: start: 20220602
  14. ENOXAPARIN SODIUM [Concomitant]
     Active Substance: ENOXAPARIN SODIUM
     Indication: Product used for unknown indication
     Dosage: 40 MILLIGRAM DAILY; CLEXANE  (ENOXAPARIN) 40 MG/DAY SUBCUTANEOUSLY, FROM 06/02/2022 UNTIL FURTHER NO
     Route: 058
     Dates: start: 20220602

REACTIONS (1)
  - Drug-induced liver injury [Recovering/Resolving]

NARRATIVE: CASE EVENT DATE: 20220601
